FAERS Safety Report 21688253 (Version 1)
Quarter: 2022Q4

REPORT INFORMATION
  Report Type: Spontaneous
  Country: GB (occurrence: GB)
  Receive Date: 20221206
  Receipt Date: 20221206
  Transmission Date: 20230113
  Serious: Yes (Other)
  Sender: FDA-Public Use
  Company Number: GB-JNJFOC-20221201875

PATIENT
  Age: 72 Year
  Sex: Male

DRUGS (4)
  1. VELCADE [Suspect]
     Active Substance: BORTEZOMIB
     Indication: Plasma cell myeloma refractory
     Dosage: SECOND-LINE TREATMENT
     Route: 065
     Dates: start: 201906, end: 202211
  2. DARZALEX [Suspect]
     Active Substance: DARATUMUMAB
     Indication: Plasma cell myeloma refractory
     Dosage: SECOND-LINE TREATMENT
     Route: 065
     Dates: start: 201906, end: 202211
  3. DEXAMETHASONE [Suspect]
     Active Substance: DEXAMETHASONE
     Indication: Plasma cell myeloma refractory
     Dosage: SECOND-LINE TREATMENT
     Route: 065
     Dates: start: 201906, end: 202211
  4. AMLODIPINE [Concomitant]
     Active Substance: AMLODIPINE BESYLATE

REACTIONS (3)
  - Neuropathy peripheral [Unknown]
  - Herpes zoster [Unknown]
  - Anaemia [Unknown]
